FAERS Safety Report 6123078-6 (Version None)
Quarter: 2009Q1

REPORT INFORMATION
  Report Type: 
  Country: None (occurrence: None)
  Receive Date: 20090318
  Receipt Date: 20090318
  Transmission Date: 20090719
  Serious: Yes (Other)
  Sender: FDA-Public Use
  Company Number: BE-PFIZER INC-2009163025

PATIENT

DRUGS (1)
  1. XALATAN [Suspect]
     Route: 061

REACTIONS (1)
  - BRADYCARDIA [None]
